FAERS Safety Report 8411551 (Version 4)
Quarter: 2015Q3

REPORT INFORMATION
  Report Type: Spontaneous
  Country: DK (occurrence: DK)
  Receive Date: 20120217
  Receipt Date: 20150908
  Transmission Date: 20151125
  Serious: Yes (Life-Threatening, Hospitalization, Other)
  Sender: FDA-Public Use
  Company Number: DK-B.I. PHARMACEUTICALS,INC./RIDGEFIELD-2012-SW-00113DB

PATIENT
  Age: 65 Year
  Sex: Male
  Weight: 150 kg

DRUGS (7)
  1. SPIRION [Concomitant]
     Indication: PRODUCT USED FOR UNKNOWN INDICATION
     Dosage: 50 MG
     Route: 048
  2. FURIX [Concomitant]
     Active Substance: FUROSEMIDE
     Indication: PRODUCT USED FOR UNKNOWN INDICATION
     Dosage: 120 MG
     Route: 048
  3. CORDAN [Concomitant]
     Active Substance: AMIODARONE
     Indication: ATRIAL FIBRILLATION
     Route: 065
  4. KALEORID [Concomitant]
     Active Substance: POTASSIUM CHLORIDE
     Indication: PRODUCT USED FOR UNKNOWN INDICATION
     Dosage: 1125 MG
     Route: 048
  5. PRADAXA [Suspect]
     Active Substance: DABIGATRAN ETEXILATE MESYLATE
     Indication: ATRIAL FIBRILLATION
     Dosage: 300 MG
     Route: 048
     Dates: start: 20111107
  6. RAMIPRIL. [Concomitant]
     Active Substance: RAMIPRIL
     Indication: HYPERTENSION
     Dosage: 10 MG
     Route: 048
  7. SELOZOK [Concomitant]
     Active Substance: METOPROLOL SUCCINATE
     Indication: ATRIAL FIBRILLATION
     Route: 065

REACTIONS (20)
  - Acute abdomen [Unknown]
  - Renal infarct [Unknown]
  - Gastrointestinal necrosis [Unknown]
  - Vomiting [Unknown]
  - Gastrointestinal disorder [Unknown]
  - Ascites [Unknown]
  - Abdominal pain [Unknown]
  - Cerebral infarction [Not Recovered/Not Resolved]
  - Splenic infarction [Unknown]
  - Hemiparesis [Unknown]
  - Intestinal gangrene [Not Recovered/Not Resolved]
  - Intestinal ischaemia [Unknown]
  - Ileus [Unknown]
  - Renal disorder [Unknown]
  - Neurologic neglect syndrome [Unknown]
  - Colectomy [Unknown]
  - Hemianopia [Unknown]
  - Breath sounds abnormal [Unknown]
  - Hemiplegia [Not Recovered/Not Resolved]
  - Diarrhoea haemorrhagic [Unknown]

NARRATIVE: CASE EVENT DATE: 2012
